FAERS Safety Report 9216136 (Version 2)
Quarter: 2013Q3

REPORT INFORMATION
  Report Type: Spontaneous
  Country: AT (occurrence: None)
  Receive Date: 20130402
  Receipt Date: 20130828
  Transmission Date: 20140515
  Serious: Yes (Hospitalization, Other)
  Sender: FDA-Public Use
  Company Number: 2013P1003651

PATIENT
  Age: 39 Year
  Sex: Female

DRUGS (2)
  1. LORAZEPAM [Suspect]
     Indication: SCHIZOPHRENIA
  2. RISPERIDONE [Suspect]

REACTIONS (8)
  - Treatment noncompliance [None]
  - Acute psychosis [None]
  - Catatonia [None]
  - Withdrawal syndrome [None]
  - Echolalia [None]
  - Mutism [None]
  - Hallucination, auditory [None]
  - Psychotic disorder [None]
